FAERS Safety Report 5297475-5 (Version None)
Quarter: 2007Q2

REPORT INFORMATION
  Report Type: 
  Country: None (occurrence: None)
  Receive Date: 20070416
  Receipt Date: 20070411
  Transmission Date: 20071010
  Serious: Yes (Hospitalization)
  Sender: FDA-Public Use
  Company Number: US-GENENTECH-236299

PATIENT
  Age: 42 Year
  Sex: Male
  Weight: 158.73 kg

DRUGS (11)
  1. XOLAIR [Suspect]
     Indication: ASTHMA
     Dosage: 350 ML, Q2W
     Route: 058
     Dates: start: 20060819
  2. CATAPRES [Concomitant]
     Indication: DRUG USE FOR UNKNOWN INDICATION
     Dosage: 0.1 MG, BID
  3. CATAPRES-TTS-1 [Concomitant]
     Indication: DRUG USE FOR UNKNOWN INDICATION
     Dosage: 0.03 UNK, 1/WEEK
  4. BENICAR [Concomitant]
     Indication: DRUG USE FOR UNKNOWN INDICATION
     Dosage: 25 MG, QD
  5. ULTRACET [Concomitant]
     Indication: DRUG USE FOR UNKNOWN INDICATION
     Dosage: 2 TABLET, PRN
  6. NEXIUM [Concomitant]
     Indication: DRUG USE FOR UNKNOWN INDICATION
     Dosage: 1 TABLET, BID
  7. LEXAPRO [Concomitant]
     Indication: DRUG USE FOR UNKNOWN INDICATION
     Dosage: 20 MG, QD
  8. PREDNISONE TAB [Concomitant]
     Indication: DRUG USE FOR UNKNOWN INDICATION
     Dosage: 10 MG, UNK
  9. ALBUTEROL [Concomitant]
     Indication: DRUG USE FOR UNKNOWN INDICATION
     Dosage: 90 MG, UNK
  10. ADVAIR DISKUS 100/50 [Concomitant]
     Indication: DRUG USE FOR UNKNOWN INDICATION
     Dosage: 250 UNK, UNK
  11. SINGULAIR [Concomitant]
     Indication: DRUG USE FOR UNKNOWN INDICATION
     Dosage: 10 MG, UNK

REACTIONS (1)
  - UPPER RESPIRATORY TRACT INFECTION [None]
